FAERS Safety Report 9097578 (Version 2)
Quarter: 2013Q1

REPORT INFORMATION
  Report Type: Spontaneous
  Country: PL (occurrence: PL)
  Receive Date: 20130212
  Receipt Date: 20130219
  Transmission Date: 20140127
  Serious: Yes (Life-Threatening)
  Sender: FDA-Public Use
  Company Number: PL-PFIZER INC-2013056086

PATIENT
  Age: 64 Year
  Sex: Male
  Weight: 88 kg

DRUGS (2)
  1. CARBOPLATIN [Suspect]
     Indication: LUNG NEOPLASM MALIGNANT
     Dosage: 890 MG
     Route: 042
     Dates: start: 20130102, end: 20130102
  2. VINORELBINE [Suspect]
     Indication: LUNG NEOPLASM MALIGNANT
     Dosage: 59.84 MG
     Route: 042
     Dates: start: 20130102, end: 20130102

REACTIONS (2)
  - Leukopenia [Unknown]
  - Granulocytopenia [Unknown]
